FAERS Safety Report 4697722-4 (Version None)
Quarter: 2005Q2

REPORT INFORMATION
  Report Type: 
  Country: None (occurrence: None)
  Receive Date: 20050621
  Receipt Date: 20050621
  Transmission Date: 20051028
  Serious: No
  Sender: FDA-Public Use
  Company Number: None

PATIENT
  Sex: Female

DRUGS (2)
  1. XANAX [Suspect]
     Indication: ANXIETY
     Dosage: 2.0 MG ONE Q 4 H Q 3-6 MONTH
  2. XANAX [Suspect]
     Indication: DEPRESSION
     Dosage: 2.0 MG ONE Q 4 H Q 3-6 MONTH

REACTIONS (6)
  - DIZZINESS [None]
  - FALL [None]
  - HYPERSENSITIVITY [None]
  - PHARMACEUTICAL PRODUCT COMPLAINT [None]
  - REACTION TO MEDICAL AGENT PRESERVATIVES [None]
  - VOMITING [None]
